FAERS Safety Report 25429691 (Version 2)
Quarter: 2025Q2

REPORT INFORMATION
  Report Type: Spontaneous
  Country: US (occurrence: US)
  Receive Date: 20250612
  Receipt Date: 20250616
  Transmission Date: 20250717
  Serious: Yes (Other)
  Sender: NOVARTIS
  Company Number: US-SANDOZ-SDZ2025US038889

PATIENT
  Sex: Female
  Weight: 12.245 kg

DRUGS (4)
  1. CYCLOSPORINE [Suspect]
     Active Substance: CYCLOSPORINE
     Indication: Dermatitis atopic
     Dosage: 250 MG, QD
     Route: 048
     Dates: start: 20250110
  2. DUPIXENT [Suspect]
     Active Substance: DUPILUMAB
     Indication: Dermatitis atopic
     Dosage: 300 MG, QW (STRENGTH: 175 MG/ML)
     Route: 058
     Dates: start: 20250110
  3. DUPIXENT [Suspect]
     Active Substance: DUPILUMAB
     Dosage: 200 MG, Q4W (STRENGTH: 200MG/1.14ML)
     Route: 058
  4. DUPIXENT [Suspect]
     Active Substance: DUPILUMAB
     Route: 065

REACTIONS (3)
  - Blepharokeratoconjunctivitis [Unknown]
  - Off label use [Unknown]
  - Drug ineffective [Unknown]
